FAERS Safety Report 8595544-5 (Version None)
Quarter: 2012Q3

REPORT INFORMATION
  Report Type: 
  Country: None (occurrence: None)
  Receive Date: 20120815
  Receipt Date: 20120814
  Transmission Date: 20120928
  Serious: Yes (Hospitalization)
  Sender: FDA-Public Use
  Company Number: SG-B.I. PHARMACEUTICALS,INC./RIDGEFIELD-2012-CS-01096CS

PATIENT
  Sex: Male

DRUGS (12)
  1. APIXABAN [Suspect]
     Indication: THROMBOSIS PROPHYLAXIS
     Dosage: 10 MG
     Route: 048
     Dates: start: 20110113, end: 20120605
  2. BUDESONIDE [Concomitant]
     Dosage: INCREASED TO 4 PUFFS TWICE DAILY
     Dates: start: 20071024
  3. DIGOXIN [Concomitant]
     Dates: start: 20080724
  4. ISOSORBIDE DINITRATE [Concomitant]
     Dates: start: 20120418
  5. ALBUTEROL SULATE [Concomitant]
     Dates: start: 20080526
  6. SIMVASTATIN [Concomitant]
     Dates: start: 20080724
  7. NITROGLYCERIN [Concomitant]
     Dates: start: 20080526
  8. MICARDIS HCT [Suspect]
     Dosage: 1 DOSAGE FORM
     Dates: start: 20110530
  9. TOLBUTAMIDE [Concomitant]
     Dates: start: 20080724
  10. SENNA-MINT WAF [Concomitant]
     Dates: start: 20080726
  11. NIFEDIPINE [Concomitant]
     Dates: start: 20080724
  12. OMEPRAZOLE [Concomitant]
     Dates: start: 20080724

REACTIONS (3)
  - INFECTION [None]
  - HYPONATRAEMIA [None]
  - ASTHMA [None]
